FAERS Safety Report 9355600 (Version 1)
Quarter: 2013Q2

REPORT INFORMATION
  Report Type: Spontaneous
  Country: FR (occurrence: FR)
  Receive Date: 20130619
  Receipt Date: 20130619
  Transmission Date: 20140414
  Serious: Yes (Death)
  Sender: FDA-Public Use
  Company Number: FR-SANOFI-AVENTIS-2013SA059780

PATIENT
  Age: 93 Year
  Sex: Female

DRUGS (4)
  1. CALCIPARINE [Suspect]
     Indication: PROPHYLAXIS
     Route: 058
     Dates: start: 20130508, end: 20130519
  2. CALCIPARINE [Suspect]
     Indication: PROPHYLAXIS
     Route: 058
     Dates: start: 20130520, end: 20130521
  3. LOVENOX [Suspect]
     Indication: PROPHYLAXIS
     Route: 058
     Dates: start: 20130522, end: 20130522
  4. CORDARONE [Concomitant]
     Indication: ATRIAL FIBRILLATION
     Route: 048
     Dates: start: 20130510

REACTIONS (2)
  - Heparin-induced thrombocytopenia [Fatal]
  - Thrombosis [Fatal]
